FAERS Safety Report 8097613-5 (Version None)
Quarter: 2012Q1

REPORT INFORMATION
  Report Type: 
  Country: None (occurrence: None)
  Receive Date: 20120128
  Receipt Date: 20110705
  Transmission Date: 20120608
  Serious: No
  Sender: FDA-Public Use
  Company Number: US-ABBOTT-11P-163-0836445-00

PATIENT
  Age: 54 Year
  Sex: Female

DRUGS (7)
  1. HUMIRA [Suspect]
     Indication: RHEUMATOID ARTHRITIS
     Dates: start: 20060401
  2. ZOLOFT [Concomitant]
     Indication: PREMENSTRUAL SYNDROME
  3. LISINOPRIL [Concomitant]
     Indication: HYPERTENSION
  4. XALATAN [Concomitant]
     Indication: PRODUCT USED FOR UNKNOWN INDICATION
     Dosage: 1 DROP IN EACH EYE BEFORE BEDTIME
  5. MULTI-VITAMIN [Concomitant]
     Indication: PRODUCT USED FOR UNKNOWN INDICATION
  6. LEVOTHYROXINE SODIUM [Concomitant]
     Indication: THYROID DISORDER
  7. ZOLOFT [Concomitant]
     Indication: MENOPAUSE

REACTIONS (1)
  - TINEA PEDIS [None]
